FAERS Safety Report 23223465 (Version 1)
Quarter: 2023Q4

REPORT INFORMATION
  Report Type: Spontaneous
  Country: GB (occurrence: GB)
  Receive Date: 20231123
  Receipt Date: 20231123
  Transmission Date: 20240110
  Serious: Yes (Other)
  Sender: FDA-Public Use
  Company Number: GB-MHRA-TPP27437836C9155773YC1699952248387

PATIENT
  Age: 34 Year
  Sex: Male
  Weight: 127 kg

DRUGS (4)
  1. ERYTHROMYCIN [Suspect]
     Active Substance: ERYTHROMYCIN
     Indication: Ill-defined disorder
     Dosage: UNK
     Route: 065
     Dates: start: 20231110
  2. LORATADINE [Concomitant]
     Active Substance: LORATADINE
     Indication: Ill-defined disorder
     Dosage: 1 TABLET
     Route: 065
     Dates: start: 20230803, end: 20231110
  3. LYMECYCLINE [Concomitant]
     Active Substance: LYMECYCLINE
     Indication: Ill-defined disorder
     Dosage: 1 CAPSULE
     Route: 065
     Dates: start: 20230628, end: 20231110
  4. PROPRANOLOL [Concomitant]
     Active Substance: PROPRANOLOL HYDROCHLORIDE
     Indication: Ill-defined disorder
     Dosage: 1 TABLET
     Route: 065
     Dates: start: 20230417, end: 20231110

REACTIONS (1)
  - Oropharyngeal swelling [Recovered/Resolved]

NARRATIVE: CASE EVENT DATE: 20231114
